FAERS Safety Report 25400896 (Version 1)
Quarter: 2025Q2

REPORT INFORMATION
  Report Type: Spontaneous
  Country: US (occurrence: US)
  Receive Date: 20250605
  Receipt Date: 20250605
  Transmission Date: 20250717
  Serious: No
  Sender: ALEXION PHARMACEUTICALS
  Company Number: US-AstraZeneca-2024-213840

PATIENT
  Age: 64 Year

DRUGS (1)
  1. AIRSUPRA [Suspect]
     Active Substance: ALBUTEROL SULFATE\BUDESONIDE
     Dosage: 90 MICROGRAM, QID

REACTIONS (5)
  - Intentional product misuse [Unknown]
  - Device delivery system issue [Unknown]
  - Device malfunction [Unknown]
  - Product communication issue [Unknown]
  - Wrong technique in device usage process [Unknown]
